FAERS Safety Report 11004421 (Version 2)
Quarter: 2015Q3

REPORT INFORMATION
  Report Type: Spontaneous
  Country: US (occurrence: US)
  Receive Date: 20150409
  Receipt Date: 20150710
  Transmission Date: 20151125
  Serious: No
  Sender: FDA-Public Use
  Company Number: US-TEVA-546014USA

PATIENT
  Sex: Female

DRUGS (1)
  1. TOBRAMYCIN. [Suspect]
     Active Substance: TOBRAMYCIN
     Indication: PNEUMONIA PSEUDOMONAL
     Dosage: 600 MILLIGRAM DAILY;
     Route: 055
     Dates: start: 20141126, end: 20141209

REACTIONS (2)
  - Dysphonia [Recovering/Resolving]
  - Aphonia [Recovering/Resolving]
